FAERS Safety Report 13961827 (Version 3)
Quarter: 2017Q4

REPORT INFORMATION
  Report Type: Spontaneous
  Country: IT (occurrence: IT)
  Receive Date: 20170912
  Receipt Date: 20171107
  Transmission Date: 20180320
  Serious: Yes (Other)
  Sender: FDA-Public Use
  Company Number: IT-MALLINCKRODT-T201703726

PATIENT
  Age: 39 Year
  Sex: Male

DRUGS (9)
  1. HYDROMORPHONE HYDROCHLORIDE. [Suspect]
     Active Substance: HYDROMORPHONE HYDROCHLORIDE
     Indication: PHANTOM PAIN
     Dosage: 4 MG, 2 IN 1 TOTAL
     Route: 048
     Dates: start: 20170902, end: 20170902
  2. DEPAKIN [Suspect]
     Active Substance: VALPROATE SODIUM
     Indication: POST-TRAUMATIC EPILEPSY
     Dosage: UNK
     Dates: start: 20170620, end: 20170901
  3. LYRICA [Suspect]
     Active Substance: PREGABALIN
     Indication: PHANTOM PAIN
     Dosage: 150 MG, 2 IN 1 DAY
     Route: 048
  4. LYRICA [Suspect]
     Active Substance: PREGABALIN
     Dosage: 4 DOSE(S), IN 1 TOTAL
     Route: 048
     Dates: start: 20170902, end: 20170902
  5. PANTOPRAZOLE [Concomitant]
     Active Substance: PANTOPRAZOLE
     Indication: GASTRITIS
     Dosage: UNK
  6. LEVETIRACETAM. [Suspect]
     Active Substance: LEVETIRACETAM
     Indication: EPILEPSY
     Dosage: 3 DOSE(S),  IN 1 DAY
     Route: 048
     Dates: start: 20170620, end: 20170901
  7. HYDROMORPHONE HYDROCHLORIDE. [Suspect]
     Active Substance: HYDROMORPHONE HYDROCHLORIDE
     Indication: FRACTURE PAIN
     Dosage: 16 MG, IN 1 TOTAL
     Route: 048
     Dates: start: 20170902, end: 20170902
  8. HYDROMORPHONE HYDROCHLORIDE. [Suspect]
     Active Substance: HYDROMORPHONE HYDROCHLORIDE
     Dosage: 12 MG, 1 IN 1 DAY
     Route: 048
  9. OKI [Concomitant]
     Active Substance: KETOPROFEN LYSINE
     Indication: PAIN
     Dosage: UNK
     Route: 048

REACTIONS (3)
  - Sopor [Recovered/Resolved]
  - Intentional self-injury [Recovered/Resolved]
  - Intentional product misuse [Recovered/Resolved]

NARRATIVE: CASE EVENT DATE: 20170902
